FAERS Safety Report 6476444-3 (Version None)
Quarter: 2009Q4

REPORT INFORMATION
  Report Type: 
  Country: None (occurrence: None)
  Receive Date: 20091207
  Receipt Date: 20091125
  Transmission Date: 20100525
  Serious: Yes (Hospitalization, Other)
  Sender: FDA-Public Use
  Company Number: GB-RANBAXY-2009RR-28896

PATIENT
  Age: 34 Year
  Sex: Female

DRUGS (6)
  1. IBUPROFEN [Suspect]
     Indication: NECK PAIN
     Route: 065
  2. IBUPROFEN [Suspect]
     Indication: MUSCLE STRAIN
  3. AZATHIOPRINE [Concomitant]
     Route: 065
  4. CYCLOSPORINE [Concomitant]
     Route: 065
  5. PREDNISOLONE [Concomitant]
     Route: 065
  6. DF118 [Concomitant]
     Indication: PAIN

REACTIONS (13)
  - ALBUMINURIA [None]
  - BLOOD CREATININE INCREASED [None]
  - BLOOD URINE PRESENT [None]
  - COMPLICATIONS OF TRANSPLANT SURGERY [None]
  - HAEMATURIA [None]
  - INFLAMMATION [None]
  - MALAISE [None]
  - NEPHRITIS [None]
  - OEDEMA [None]
  - PAIN [None]
  - PROTEIN URINE PRESENT [None]
  - RENAL TUBULAR DISORDER [None]
  - TUBULOINTERSTITIAL NEPHRITIS [None]
